FAERS Safety Report 13191877 (Version 1)
Quarter: 2017Q1

REPORT INFORMATION
  Report Type: Spontaneous
  Country: FR (occurrence: FR)
  Receive Date: 20170207
  Receipt Date: 20170207
  Transmission Date: 20170428
  Serious: Yes (Hospitalization)
  Sender: FDA-Public Use
  Company Number: FR-EMD SERONO-8139310

PATIENT
  Age: 27 Year
  Sex: Female

DRUGS (4)
  1. FOLLITROPIN ALFA [Suspect]
     Active Substance: FOLLITROPIN
     Route: 058
     Dates: start: 20161201
  2. OVITRELLE [Suspect]
     Active Substance: CHORIOGONADOTROPIN ALFA
     Indication: IN VITRO FERTILISATION
     Dosage: 250 MICROGRAMS/0.5 ML, SOLUTION FOR INJECTION IN A PRE-FILLED SYRINGE
     Route: 058
     Dates: start: 20161205
  3. FOLLITROPIN ALFA [Suspect]
     Active Substance: FOLLITROPIN
     Indication: IN VITRO FERTILISATION
     Route: 058
     Dates: start: 20161125, end: 20161130
  4. DECAPEPTYL                         /00486501/ [Suspect]
     Active Substance: GONADORELIN
     Indication: IN VITRO FERTILISATION
     Dosage: POWDER AND SOLVENT FOR SUSPENSION FOR INJECTION EXTENDED RELEASE FROM OVER 28 DAYS
     Route: 030
     Dates: start: 201611

REACTIONS (2)
  - Dyspnoea [Recovered/Resolved]
  - Ovarian hyperstimulation syndrome [Recovered/Resolved]

NARRATIVE: CASE EVENT DATE: 20161206
